FAERS Safety Report 24843007 (Version 1)
Quarter: 2025Q1

REPORT INFORMATION
  Report Type: Report from Study
  Country: IL (occurrence: IL)
  Receive Date: 20250115
  Receipt Date: 20250115
  Transmission Date: 20250408
  Serious: Yes (Other)
  Sender: ABBVIE
  Company Number: IL-ABBVIE-6083448

PATIENT
  Age: 84 Year
  Sex: Female

DRUGS (1)
  1. SKYRIZI [Suspect]
     Active Substance: RISANKIZUMAB-RZAA
     Indication: Crohn^s disease
     Dosage: FORM STRENGTH: 600 MILLIGRAM
     Route: 042
     Dates: start: 20250107

REACTIONS (7)
  - Syncope [Unknown]
  - Fall [Unknown]
  - Asthenia [Unknown]
  - Malaise [Unknown]
  - Face injury [Unknown]
  - Diarrhoea [Recovered/Resolved]
  - Injury [Unknown]

NARRATIVE: CASE EVENT DATE: 20250107
